FAERS Safety Report 10537572 (Version 1)
Quarter: 2014Q4

REPORT INFORMATION
  Report Type: Spontaneous
  Country: US (occurrence: None)
  Receive Date: 20141022
  Receipt Date: 20141022
  Transmission Date: 20150529
  Serious: Yes (Hospitalization)
  Sender: FDA-Public Use
  Company Number: None

PATIENT
  Age: 49 Year
  Sex: Female
  Weight: 86.2 kg

DRUGS (1)
  1. IBUPROFEN. [Suspect]
     Active Substance: IBUPROFEN
     Indication: OSTEOARTHRITIS
     Dosage: 4 TABLETS TID ORAL
     Route: 048

REACTIONS (4)
  - Gastrointestinal haemorrhage [None]
  - Gastritis [None]
  - Melaena [None]
  - Abdominal pain [None]

NARRATIVE: CASE EVENT DATE: 20141015
